FAERS Safety Report 9245327 (Version 1)
Quarter: 2013Q2

REPORT INFORMATION
  Report Type: Spontaneous
  Country: ES (occurrence: ES)
  Receive Date: 20130422
  Receipt Date: 20130422
  Transmission Date: 20140414
  Serious: Yes (Life-Threatening)
  Sender: FDA-Public Use
  Company Number: ES-PFIZER INC-2013124684

PATIENT
  Age: 60 Year
  Sex: 0

DRUGS (2)
  1. ZAVEDOS [Suspect]
     Indication: ACUTE MYELOID LEUKAEMIA
     Dosage: 23 MG, CYCLIC
     Route: 042
     Dates: start: 20130213, end: 20130215
  2. CITARABINA ACCORD [Suspect]
     Indication: ACUTE MYELOID LEUKAEMIA
     Dosage: 388 MG, CYCLIC
     Route: 042
     Dates: start: 20130213, end: 20130218

REACTIONS (1)
  - Cerebral ischaemia [Recovered/Resolved]
